FAERS Safety Report 7113631-5 (Version None)
Quarter: 2010Q4

REPORT INFORMATION
  Report Type: 
  Country: None (occurrence: None)
  Receive Date: 20101119
  Receipt Date: 20101110
  Transmission Date: 20110411
  Serious: Yes (Death)
  Sender: FDA-Public Use
  Company Number: CA-ROCHE-738518

PATIENT
  Sex: Male
  Weight: 83 kg

DRUGS (5)
  1. AVASTIN [Suspect]
     Indication: COLON CANCER
     Dosage: FREQUENCY: DAY 1, DOSE LEVEL: 5 MG/KG
     Route: 042
     Dates: start: 20100915, end: 20100915
  2. LEUCOVORIN CALCIUM [Concomitant]
     Indication: COLON CANCER
     Dosage: FREQUENCY: DAY 1, DRUG NAME REPORTED AS LUCOVORIN
     Route: 042
     Dates: start: 20100915
  3. FLUOROURACIL [Concomitant]
     Indication: COLON CANCER
     Dosage: FREQUENCY: DAY 1, DOSE: 650 MG/3800 MG
     Route: 042
     Dates: start: 20100915
  4. IRINOTECAN HCL [Concomitant]
     Indication: COLON CANCER
     Dosage: FREQUENCY: DAY 1
     Route: 042
     Dates: start: 20100915
  5. NORVASC [Concomitant]
     Indication: HYPERTENSION
     Dosage: DRUG NAME REPORTED AS ^NOVASC^.
     Dates: end: 20100101

REACTIONS (2)
  - BASAL GANGLIA INFARCTION [None]
  - COMA [None]
